FAERS Safety Report 17332477 (Version 2)
Quarter: 2020Q1

REPORT INFORMATION
  Report Type: Report from Study
  Country: US (occurrence: US)
  Receive Date: 20200128
  Receipt Date: 20200207
  Transmission Date: 20200409
  Serious: Yes (Hospitalization, Other)
  Sender: FDA-Public Use
  Company Number: US-ROCHE-2525808

PATIENT
  Age: 55 Year
  Sex: Female
  Weight: 74.91 kg

DRUGS (3)
  1. AMPYRA [Concomitant]
     Active Substance: DALFAMPRIDINE
  2. OCREVUS [Suspect]
     Active Substance: OCRELIZUMAB
     Indication: PRIMARY PROGRESSIVE MULTIPLE SCLEROSIS
     Route: 042
     Dates: start: 20170614, end: 20170628
  3. OCREVUS [Suspect]
     Active Substance: OCRELIZUMAB
     Dosage: MOST RECENT DOSES OF OCRELIZUMAB: 16/JUL/2018, 30/JAN/2019, 31/JUL/2019
     Route: 042
     Dates: start: 20171219

REACTIONS (6)
  - Fall [Unknown]
  - Immunoglobulins decreased [Not Recovered/Not Resolved]
  - Infection [Not Recovered/Not Resolved]
  - Upper limb fracture [Recovered/Resolved]
  - Weight increased [Not Recovered/Not Resolved]
  - Fatigue [Not Recovered/Not Resolved]

NARRATIVE: CASE EVENT DATE: 201809
